FAERS Safety Report 7123025-4 (Version None)
Quarter: 2010Q4

REPORT INFORMATION
  Report Type: 
  Country: None (occurrence: None)
  Receive Date: 20101125
  Receipt Date: 20101101
  Transmission Date: 20110411
  Serious: Yes (Hospitalization)
  Sender: FDA-Public Use
  Company Number: DE-AMGEN-DEUCT2010002962

PATIENT

DRUGS (5)
  1. ETANERCEPT [Suspect]
     Indication: RHEUMATOID ARTHRITIS
     Dosage: 25 MG, QWK
     Dates: start: 20100501
  2. NIFEDIPINE [Concomitant]
  3. RAMIPRIL [Concomitant]
     Dosage: 25 MG
  4. PREDNISONE [Concomitant]
  5. CORTISONE [Concomitant]
     Dosage: 3 MG

REACTIONS (9)
  - AMNESIA [None]
  - BLOOD CORTISOL INCREASED [None]
  - CEREBROVASCULAR ACCIDENT [None]
  - FALL [None]
  - HYPERTENSIVE CRISIS [None]
  - LOSS OF CONSCIOUSNESS [None]
  - NAUSEA [None]
  - RIB FRACTURE [None]
  - VOMITING [None]
